FAERS Safety Report 10863446 (Version 3)
Quarter: 2015Q1

REPORT INFORMATION
  Report Type: Spontaneous
  Country: NL (occurrence: NL)
  Receive Date: 20150224
  Receipt Date: 20150326
  Transmission Date: 20150721
  Serious: Yes (Hospitalization)
  Sender: FDA-Public Use
  Company Number: NL-TEVA-541282ISR

PATIENT
  Age: 80 Year
  Sex: Female
  Weight: 59 kg

DRUGS (10)
  1. DIGOXINE TABLET 0,125MG [Concomitant]
     Dosage: .125 MILLIGRAM DAILY; ONCE DAILY 0.125 MG
     Route: 048
  2. MESALAZINE TABLET MGA  500MG [Concomitant]
     Dosage: 1500 MILLIGRAM DAILY; THREE TIMES DAILY 500 MG, PROLONGED-RELEASE TABLET
     Route: 048
  3. ACENOCOUMAROL TABLET 1MG [Concomitant]
     Active Substance: ACENOCOUMAROL
     Route: 048
  4. ALENDRONINEZUUR TABLET 70MG [Concomitant]
     Dosage: ONCE WEEKLY ON FRIDAY 70 MG
     Route: 048
  5. FOLIUMZUUR TABLET 5MG [Concomitant]
     Active Substance: FOLIC ACID
     Dosage: ONCE WEEKLY ON SATURDAY 5 MG
     Route: 048
  6. FUROSEMIDE TABLET 40MG [Concomitant]
     Active Substance: FUROSEMIDE
     Dosage: 80 MILLIGRAM DAILY; ONCE DAILY 80 MG
     Route: 048
  7. CARVEDILOL TABLET  6,25MG [Concomitant]
     Dosage: 12.5 MILLIGRAM DAILY; TWICE DAILY 6.25 MG
     Route: 048
  8. AMOXICILLIN. [Suspect]
     Active Substance: AMOXICILLIN
     Indication: RESPIRATORY TRACT INFECTION
     Dosage: 1500 MILLIGRAM DAILY; THREE TIMES DAILY, THREE PIECES, EXTRA INFO: THREE TIMES DAILY 500 MG
     Route: 048
     Dates: start: 20150123, end: 20150127
  9. SPIRONOLACTON TABLET 25MG [Concomitant]
     Active Substance: SPIRONOLACTONE
     Dosage: 25 MILLIGRAM DAILY; ONCE DAILY 25 MG
     Route: 048
  10. METHOTREXATE (METHOTREXATE SODIUM) [Concomitant]
     Active Substance: METHOTREXATE SODIUM
     Dosage: ONCE WEEKLY ON WEDNESDAY METHOTREXATE
     Route: 048

REACTIONS (1)
  - Pancytopenia [Recovering/Resolving]

NARRATIVE: CASE EVENT DATE: 20150203
